FAERS Safety Report 7146445-0 (Version None)
Quarter: 2010Q4

REPORT INFORMATION
  Report Type: 
  Country: None (occurrence: None)
  Receive Date: 20101208
  Receipt Date: 20101126
  Transmission Date: 20110411
  Serious: Yes (Hospitalization, Other)
  Sender: FDA-Public Use
  Company Number: PHHY2009CA24394

PATIENT
  Sex: Female

DRUGS (17)
  1. EXJADE [Suspect]
     Indication: MYELODYSPLASTIC SYNDROME
     Dosage: 500 MG, QD
     Route: 048
     Dates: start: 20070601
  2. EXJADE [Suspect]
     Indication: IRON OVERLOAD
     Dosage: 750 MG DAILY
     Route: 048
     Dates: start: 20090612, end: 20090705
  3. EXJADE [Suspect]
     Dosage: 750 MG, UNK
     Dates: start: 20090810, end: 20090816
  4. EXJADE [Suspect]
     Dosage: 250 MG, UNK
     Dates: start: 20091110
  5. EXJADE [Suspect]
     Dosage: 500 MG, UNK
  6. EXJADE [Suspect]
     Dosage: 750 MG DAILY
     Dates: start: 20090521
  7. EXJADE [Suspect]
     Dosage: 1250 MG, QD
     Route: 048
     Dates: start: 20100201
  8. EXJADE [Suspect]
     Dosage: 1000 MG, QD
     Route: 048
     Dates: start: 20100201
  9. CYCLOSPORINE [Concomitant]
     Dosage: 100 MG, QD
     Route: 048
  10. VITAMIN D [Concomitant]
  11. ASCORBIC ACID [Concomitant]
  12. POTASSIUM CHLORIDE [Concomitant]
  13. ACTONEL [Concomitant]
     Indication: OSTEOPOROSIS
     Dosage: 35 MG, UNK
     Route: 048
  14. ACTONEL [Concomitant]
     Dosage: 150 MG
     Route: 048
  15. TYLENOL-500 [Concomitant]
  16. REACTINE [Concomitant]
  17. SOLU-CORTEF [Concomitant]

REACTIONS (24)
  - ABDOMINAL DISTENSION [None]
  - ABDOMINAL PAIN UPPER [None]
  - ARTHRALGIA [None]
  - BLOOD IRON INCREASED [None]
  - BLOOD PRESSURE INCREASED [None]
  - BURNING SENSATION [None]
  - CHEST PAIN [None]
  - COUGH [None]
  - DIARRHOEA [None]
  - DYSARTHRIA [None]
  - DYSPHONIA [None]
  - HEADACHE [None]
  - INSOMNIA [None]
  - MALIGNANT NEOPLASM PROGRESSION [None]
  - MYALGIA [None]
  - NAUSEA [None]
  - PANCYTOPENIA [None]
  - PHARYNGEAL ERYTHEMA [None]
  - PRURITUS GENERALISED [None]
  - PYREXIA [None]
  - RESPIRATORY TRACT CONGESTION [None]
  - SEPSIS [None]
  - THROAT TIGHTNESS [None]
  - VISION BLURRED [None]
